FAERS Safety Report 5630068-6 (Version None)
Quarter: 2008Q1

REPORT INFORMATION
  Report Type: 
  Country: None (occurrence: None)
  Receive Date: 20080218
  Receipt Date: 20080208
  Transmission Date: 20080703
  Serious: Yes (Disabling)
  Sender: FDA-Public Use
  Company Number: PHNR2007AU00807

PATIENT
  Sex: Female

DRUGS (4)
  1. GLEEVEC [Suspect]
     Indication: CHRONIC MYELOID LEUKAEMIA
     Dosage: 400MG DAILY
     Route: 048
     Dates: start: 20010101
  2. GLEEVEC [Suspect]
     Dosage: 200MG DAILY
     Route: 048
  3. OXYBUTYNIN CHLORIDE [Concomitant]
     Dosage: 10 MG, UNK
  4. NORFLOXACIN [Concomitant]
     Indication: URINARY TRACT INFECTION
     Dates: start: 20061201, end: 20070101

REACTIONS (3)
  - CONDITION AGGRAVATED [None]
  - OEDEMA PERIPHERAL [None]
  - URINARY INCONTINENCE [None]
